FAERS Safety Report 10598023 (Version 1)
Quarter: 2014Q4

REPORT INFORMATION
  Report Type: Spontaneous
  Country: US (occurrence: None)
  Receive Date: 20141120
  Receipt Date: 20141120
  Transmission Date: 20150529
  Serious: Yes (Disabling, Other)
  Sender: FDA-Public Use
  Company Number: None

PATIENT
  Age: 43 Year
  Sex: Female
  Weight: 47.63 kg

DRUGS (8)
  1. VITAMIN D [Suspect]
     Active Substance: CHOLECALCIFEROL
  2. IBRUPROFEN [Concomitant]
  3. CALCIUM [Concomitant]
     Active Substance: CALCIUM
  4. AUBAGIO (TERIFLUNOMIDE) [Concomitant]
  5. AVONEX [Suspect]
     Active Substance: INTERFERON BETA-1A
     Indication: MULTIPLE SCLEROSIS
     Dosage: 30MCG/0.5ML?(2) /4 PRE-FILLED INJECTION PENS?ONCE WEEKLY?INTRA-MUSCULAR INJECTION
     Route: 030
     Dates: start: 20130807, end: 20130907
  6. ADVIL [Concomitant]
     Active Substance: IBUPROFEN
  7. ENSURE COMPLETE [Concomitant]
  8. VITAMIN D3 [Concomitant]
     Active Substance: CHOLECALCIFEROL

REACTIONS (15)
  - Malaise [None]
  - Vision blurred [None]
  - Nausea [None]
  - Urinary incontinence [None]
  - Lid sulcus deepened [None]
  - Abasia [None]
  - Vomiting [None]
  - Eyelid ptosis [None]
  - Metamorphopsia [None]
  - Strabismus [None]
  - Dizziness [None]
  - Seizure [None]
  - Respiratory disorder [None]
  - Visual impairment [None]
  - Pyrexia [None]

NARRATIVE: CASE EVENT DATE: 20130829
